FAERS Safety Report 13877432 (Version 2)
Quarter: 2018Q1

REPORT INFORMATION
  Report Type: Report from Study
  Country: AU (occurrence: AU)
  Receive Date: 20170817
  Receipt Date: 20180207
  Transmission Date: 20180508
  Serious: Yes (Other)
  Sender: FDA-Public Use
  Company Number: AU-REGENERON PHARMACEUTICALS, INC.-2017-20370

PATIENT

DRUGS (3)
  1. EYLEA [Suspect]
     Active Substance: AFLIBERCEPT
     Dosage: LAST INJECTION, RIGHT EYE
     Route: 031
     Dates: start: 201706, end: 201706
  2. EYLEA [Suspect]
     Active Substance: AFLIBERCEPT
     Dosage: LEFT AND RIGHT EYES INJECTIONS   UNK
     Route: 031
     Dates: start: 201705, end: 201705
  3. EYLEA [Suspect]
     Active Substance: AFLIBERCEPT
     Indication: NEOVASCULAR AGE-RELATED MACULAR DEGENERATION
     Dosage: RIGHT EYE
     Route: 031
     Dates: start: 201611

REACTIONS (8)
  - Blindness unilateral [Unknown]
  - Anxiety [Not Recovered/Not Resolved]
  - Insomnia [Not Recovered/Not Resolved]
  - Vomiting [Not Recovered/Not Resolved]
  - Dermatitis [Recovering/Resolving]
  - Blood glucose abnormal [Not Recovered/Not Resolved]
  - White blood cell count increased [Unknown]
  - Neovascular age-related macular degeneration [Recovering/Resolving]

NARRATIVE: CASE EVENT DATE: 201705
